FAERS Safety Report 5334733-X (Version None)
Quarter: 2007Q2

REPORT INFORMATION
  Report Type: 
  Country: None (occurrence: None)
  Receive Date: 20070525
  Receipt Date: 20070517
  Transmission Date: 20071010
  Serious: Yes (Other)
  Sender: FDA-Public Use
  Company Number: AU-JNJFOC-20070300115

PATIENT
  Sex: Female

DRUGS (4)
  1. TOPAMAX [Suspect]
     Indication: EPILEPSY
  2. CITALOPRAM HYDROBROMIDE [Suspect]
     Indication: DEPRESSION
  3. EPILIM [Concomitant]
     Indication: DRUG USE FOR UNKNOWN INDICATION
  4. TEGRETOL [Concomitant]
     Indication: DRUG USE FOR UNKNOWN INDICATION

REACTIONS (6)
  - AGGRESSION [None]
  - DEPRESSION [None]
  - INTRACRANIAL PRESSURE INCREASED [None]
  - PSYCHOTIC DISORDER [None]
  - SHUNT MALFUNCTION [None]
  - SPEECH DISORDER [None]
